FAERS Safety Report 10157587 (Version 2)
Quarter: 2014Q2

REPORT INFORMATION
  Report Type: Spontaneous
  Country: DE (occurrence: DE)
  Receive Date: 20140507
  Receipt Date: 20140507
  Transmission Date: 20141212
  Serious: Yes (Life-Threatening, Hospitalization, Other)
  Sender: FDA-Public Use
  Company Number: DE-GILEAD-2014-0098658

PATIENT
  Age: 48 Year
  Sex: Female
  Weight: 79 kg

DRUGS (8)
  1. SOVALDI [Suspect]
     Indication: CHRONIC HEPATITIS C
     Dosage: 400 MG, QD
     Route: 048
     Dates: start: 20140228
  2. SOVALDI [Suspect]
     Dosage: 4000 MG, TOTAL
     Route: 048
     Dates: start: 20140329, end: 20140329
  3. PEGASYS [Suspect]
     Indication: CHRONIC HEPATITIS C
     Dosage: 180 ?G, Q1WK
     Route: 058
     Dates: start: 20140228, end: 20140329
  4. PEGASYS [Suspect]
     Dosage: 3 DF, TOTAL
     Route: 058
     Dates: start: 20140329, end: 20140329
  5. PEGASYS [Suspect]
     Dosage: UNK
     Route: 058
     Dates: end: 201401
  6. RIBAVIRIN [Suspect]
     Indication: CHRONIC HEPATITIS C
     Dosage: 1200 MG, QD
     Route: 048
     Dates: start: 20140228
  7. RIBAVIRIN [Suspect]
     Dosage: 4000 MG, TOTAL
     Route: 048
     Dates: start: 20140329
  8. RIBAVIRIN [Suspect]
     Dosage: UNK
     Route: 048
     Dates: end: 201401

REACTIONS (2)
  - Suicide attempt [Recovered/Resolved]
  - Intentional overdose [Recovered/Resolved]
